FAERS Safety Report 8062224-4 (Version None)
Quarter: 2012Q1

REPORT INFORMATION
  Report Type: 
  Country: None (occurrence: None)
  Receive Date: 20120123
  Receipt Date: 20120109
  Transmission Date: 20120608
  Serious: Yes (Hospitalization)
  Sender: FDA-Public Use
  Company Number: FR-MYLANLABS-2012S1000481

PATIENT
  Age: 12 Year
  Sex: Male

DRUGS (37)
  1. CYTARABINE [Suspect]
     Indication: PRODUCT USED FOR UNKNOWN INDICATION
     Route: 042
     Dates: start: 20111205, end: 20111206
  2. CYTARABINE [Suspect]
     Route: 042
     Dates: start: 20111219, end: 20111220
  3. KIDROLASE [Suspect]
     Indication: PRODUCT USED FOR UNKNOWN INDICATION
     Route: 042
     Dates: start: 20111109
  4. KIDROLASE [Suspect]
     Dates: start: 20111111
  5. KIDROLASE [Suspect]
     Dates: start: 20111116
  6. ETOPOSIDE [Suspect]
     Indication: PRODUCT USED FOR UNKNOWN INDICATION
     Route: 042
     Dates: start: 20111205, end: 20111220
  7. ONDANSETRON [Suspect]
     Indication: PRODUCT USED FOR UNKNOWN INDICATION
     Route: 042
     Dates: start: 20111207, end: 20111220
  8. ONDANSETRON [Suspect]
     Dates: start: 20111116
  9. ONDANSETRON [Suspect]
     Dates: start: 20111118
  10. ONDANSETRON [Suspect]
     Dates: start: 20111219
  11. THIOGUANINE [Suspect]
     Indication: PRODUCT USED FOR UNKNOWN INDICATION
     Route: 048
     Dates: start: 20111206, end: 20111221
  12. CYTARABINE [Suspect]
     Route: 042
     Dates: start: 20111212, end: 20111213
  13. KIDROLASE [Suspect]
     Dates: start: 20111114
  14. KIDROLASE [Suspect]
     Dates: start: 20111118
  15. DEXAMETHASONE [Suspect]
     Indication: PRODUCT USED FOR UNKNOWN INDICATION
     Route: 048
     Dates: start: 20111107
  16. DEPO-MEDROL [Suspect]
     Indication: PRODUCT USED FOR UNKNOWN INDICATION
     Route: 037
     Dates: start: 20111108
  17. ONDANSETRON [Suspect]
     Dates: start: 20111121
  18. KIDROLASE [Suspect]
     Dates: start: 20111121
  19. DOXORUBICIN HCL [Suspect]
     Dates: start: 20111121
  20. ETOPOSIDE [Suspect]
     Dates: start: 20111219
  21. CYTARABINE [Suspect]
     Route: 037
     Dates: start: 20111108
  22. ELDISINE [Suspect]
     Dates: start: 20111114
  23. ELDISINE [Suspect]
     Dates: start: 20111121
  24. ETOPOSIDE [Suspect]
     Dates: start: 20111212
  25. ONDANSETRON [Suspect]
     Dates: start: 20111114
  26. ONDANSETRON [Suspect]
     Dates: start: 20111212
  27. DEPO-MEDROL [Suspect]
     Dates: start: 20111207
  28. ONDANSETRON [Suspect]
     Dates: start: 20111109
  29. ONDANSETRON [Suspect]
     Dates: start: 20111205
  30. METHOTREXATE [Suspect]
     Indication: PRODUCT USED FOR UNKNOWN INDICATION
     Route: 037
     Dates: start: 20111108
  31. THIOGUANINE [Suspect]
     Dates: start: 20111206, end: 20111221
  32. DOXORUBICIN HCL [Suspect]
     Dates: start: 20111114
  33. METHOTREXATE [Suspect]
     Route: 037
     Dates: start: 20111207
  34. CYTARABINE [Suspect]
     Route: 037
     Dates: start: 20111207
  35. DOXORUBICIN HCL [Suspect]
     Indication: PRODUCT USED FOR UNKNOWN INDICATION
     Route: 042
     Dates: start: 20111107
  36. DEXAMETHASONE [Suspect]
     Dates: start: 20111120
  37. ELDISINE [Suspect]
     Indication: PRODUCT USED FOR UNKNOWN INDICATION
     Route: 042
     Dates: start: 20111107

REACTIONS (1)
  - VENOOCCLUSIVE LIVER DISEASE [None]
